FAERS Safety Report 25979091 (Version 1)
Quarter: 2025Q4

REPORT INFORMATION
  Report Type: Spontaneous
  Country: US (occurrence: None)
  Receive Date: 20251029
  Receipt Date: 20251029
  Transmission Date: 20260117
  Serious: No
  Sender: FDA-CTU
  Company Number: None

PATIENT
  Age: 62 Year
  Sex: Male

DRUGS (1)
  1. HOMEOPATHICS [Suspect]
     Active Substance: HOMEOPATHICS

REACTIONS (5)
  - Skin irritation [None]
  - Dermatitis [None]
  - Pruritus [None]
  - Thermal burn [None]
  - Application site reaction [None]

NARRATIVE: CASE EVENT DATE: 20250924
